FAERS Safety Report 19766850 (Version 3)
Quarter: 2021Q4

REPORT INFORMATION
  Report Type: Spontaneous
  Country: US (occurrence: US)
  Receive Date: 20210831
  Receipt Date: 20211213
  Transmission Date: 20220303
  Serious: No
  Sender: FDA-Public Use
  Company Number: US-ORGANON-O2108USA001930

PATIENT
  Sex: Female

DRUGS (1)
  1. NEXPLANON [Suspect]
     Active Substance: ETONOGESTREL
     Dosage: 1 IMPLANT (68 MG)
     Route: 059
     Dates: end: 20210706

REACTIONS (4)
  - Device breakage [Unknown]
  - Complication of device removal [Unknown]
  - Device issue [Unknown]
  - No adverse event [Unknown]
